FAERS Safety Report 20206456 (Version 1)
Quarter: 2021Q4

REPORT INFORMATION
  Report Type: Spontaneous
  Country: US (occurrence: None)
  Receive Date: 20211217
  Receipt Date: 20211217
  Transmission Date: 20220303
  Serious: No
  Sender: FDA-Public Use
  Company Number: None

PATIENT
  Sex: Female

DRUGS (1)
  1. HUMIRA [Suspect]
     Active Substance: ADALIMUMAB
     Indication: Rheumatoid arthritis
     Dosage: OTHER FREQUENCY : 40MG/0.8ML QOW;?
     Route: 058
     Dates: start: 20181127

REACTIONS (4)
  - Joint swelling [None]
  - Arthralgia [None]
  - Arthralgia [None]
  - Back pain [None]
